FAERS Safety Report 10219376 (Version 2)
Quarter: 2014Q3

REPORT INFORMATION
  Report Type: Report from Study
  Country: US (occurrence: US)
  Receive Date: 20140605
  Receipt Date: 20140702
  Transmission Date: 20150326
  Serious: Yes (Death, Hospitalization)
  Sender: FDA-Public Use
  Company Number: US-ACTELION-A-NJ2014-099920

PATIENT
  Age: 14 Year
  Sex: Female
  Weight: 66 kg

DRUGS (5)
  1. OXYGEN. [Concomitant]
     Active Substance: OXYGEN
     Dosage: 1.5 L, UNK, ON NASAL CANNULA
  2. TRACLEER [Suspect]
     Active Substance: BOSENTAN\BOSENTAN MONOHYDRATE
     Indication: PULMONARY ARTERIAL HYPERTENSION
     Dosage: 125 MG, BID
     Route: 048
  3. ASA [Suspect]
     Active Substance: ASPIRIN
     Dosage: 81 MG (TITER), UNK
     Dates: end: 201405
  4. VENTAVIS [Suspect]
     Active Substance: ILOPROST
     Indication: PULMONARY ARTERIAL HYPERTENSION
     Dosage: 5 MCG, 6-9 X/DAILY
     Route: 055
  5. ADCIRCA [Concomitant]
     Active Substance: TADALAFIL
     Dosage: 20 MG, BID

REACTIONS (12)
  - Packed red blood cell transfusion [Unknown]
  - Nausea [Recovered/Resolved]
  - Loss of consciousness [Recovering/Resolving]
  - Anaemia [Recovering/Resolving]
  - Blood calcium decreased [Recovering/Resolving]
  - Death [Fatal]
  - Menorrhagia [Recovering/Resolving]
  - Palpitations [Recovering/Resolving]
  - Depression [Unknown]
  - Vomiting [Recovered/Resolved]
  - Abdominal pain [Recovered/Resolved]
  - Dizziness [Recovering/Resolving]

NARRATIVE: CASE EVENT DATE: 20140506
